FAERS Safety Report 5555979-1 (Version None)
Quarter: 2007Q4

REPORT INFORMATION
  Report Type: 
  Country: None (occurrence: None)
  Receive Date: 20071213
  Receipt Date: 20071201
  Transmission Date: 20080405
  Serious: Yes (Hospitalization, Other)
  Sender: FDA-Public Use
  Company Number: US-PFIZER INC-2007101493

PATIENT
  Sex: Female
  Weight: 104.3 kg

DRUGS (3)
  1. GEODON [Suspect]
     Indication: BIPOLAR DISORDER
     Dosage: DAILY DOSE:240MG
  2. LITHIUM CARBONATE [Suspect]
     Indication: BIPOLAR DISORDER
  3. LAMICTAL [Suspect]

REACTIONS (4)
  - BIPOLAR DISORDER [None]
  - MANIA [None]
  - PERSONALITY DISORDER [None]
  - SLEEP APNOEA SYNDROME [None]
